FAERS Safety Report 9909618 (Version 1)
Quarter: 2014Q1

REPORT INFORMATION
  Report Type: Spontaneous
  Country: US (occurrence: None)
  Receive Date: 20140218
  Receipt Date: 20140218
  Transmission Date: 20141002
  Serious: Yes (Other)
  Sender: FDA-Public Use
  Company Number: DL2014-0162

PATIENT
  Age: 27 Year
  Sex: Female

DRUGS (3)
  1. MIFEPRISTONE [Suspect]
     Indication: ABORTION INDUCED
     Route: 048
     Dates: start: 20131221
  2. MISOPROSTOL [Suspect]
     Route: 002
     Dates: start: 20131222
  3. METRONIDAZOLE [Concomitant]

REACTIONS (14)
  - Dyspnoea [None]
  - Chest pain [None]
  - Muscle spasms [None]
  - Dizziness [None]
  - Headache [None]
  - Haemorrhage [None]
  - Tachycardia [None]
  - Palpitations [None]
  - Anaemia [None]
  - Dizziness [None]
  - Asthenia [None]
  - Ovarian cyst [None]
  - Tremor [None]
  - Orthostatic hypotension [None]
